FAERS Safety Report 13626345 (Version 3)
Quarter: 2019Q4

REPORT INFORMATION
  Report Type: Spontaneous
  Country: US (occurrence: US)
  Receive Date: 20170607
  Receipt Date: 20191106
  Transmission Date: 20200122
  Serious: No
  Sender: FDA-Public Use
  Company Number: US-JNJFOC-20170416693

PATIENT
  Sex: Male

DRUGS (5)
  1. RISPERDAL [Suspect]
     Active Substance: RISPERIDONE
     Dosage: DOSE: 15 (UNIT UNSPECIFIED)
     Route: 048
     Dates: start: 2000
  2. SEROQUEL [Suspect]
     Active Substance: QUETIAPINE FUMARATE
     Indication: BIPOLAR DISORDER
     Dosage: DOSE: 300 (UNIT UNSPECIFIED)
     Route: 065
     Dates: start: 1990
  3. RISPERDAL [Suspect]
     Active Substance: RISPERIDONE
     Indication: BIPOLAR DISORDER
     Dosage: DOSE: 15 (UNIT UNSPECIFIED)
     Route: 048
     Dates: start: 1990
  4. RISPERDAL [Suspect]
     Active Substance: RISPERIDONE
     Dosage: VARYING DOSES OF 1 AND 2 MG
     Route: 048
     Dates: start: 20051225, end: 20061119
  5. ZYPREXA [Suspect]
     Active Substance: OLANZAPINE
     Indication: BIPOLAR DISORDER
     Dosage: VARYING DOSES OF 20 MG AND 15 MG
     Route: 065
     Dates: start: 2005, end: 2006

REACTIONS (2)
  - Gynaecomastia [Unknown]
  - Emotional distress [Unknown]
